FAERS Safety Report 6355817-3 (Version None)
Quarter: 2009Q3

REPORT INFORMATION
  Report Type: 
  Country: None (occurrence: None)
  Receive Date: 20090915
  Receipt Date: 20070718
  Transmission Date: 20100115
  Serious: Yes (Hospitalization)
  Sender: FDA-Public Use
  Company Number: US-ASTRAZENECA-2009SE11163

PATIENT
  Age: 13282 Day
  Sex: Female
  Weight: 106.3 kg

DRUGS (8)
  1. SEROQUEL [Suspect]
     Route: 048
     Dates: start: 20050722
  2. ABILIFY [Concomitant]
     Route: 048
     Dates: start: 20040107
  3. PAXIL [Concomitant]
     Dosage: 20MG-25MG
     Route: 048
     Dates: start: 20040312
  4. ZYPREXA [Concomitant]
     Dosage: 15MG-45MG
     Route: 048
     Dates: start: 20040107
  5. DEPAKOTE [Concomitant]
     Dosage: 500MG-1500MG
     Route: 048
     Dates: start: 20040205
  6. TRAZODONE [Concomitant]
     Route: 048
     Dates: start: 20040107
  7. RISPERDAL [Concomitant]
     Dosage: 1MG-8MG
     Route: 048
     Dates: start: 20040205
  8. HALOPERIDOL [Concomitant]
     Dosage: 50MG-100MG
     Route: 048
     Dates: start: 20060417

REACTIONS (7)
  - HALLUCINATION, AUDITORY [None]
  - HYPOGLYCAEMIA [None]
  - HYPOGLYCAEMIC SEIZURE [None]
  - HYPOTENSION [None]
  - LIVER FUNCTION TEST ABNORMAL [None]
  - RHABDOMYOLYSIS [None]
  - VOMITING [None]
